FAERS Safety Report 4551704-1 (Version None)
Quarter: 2005Q1

REPORT INFORMATION
  Report Type: 
  Country: None (occurrence: None)
  Receive Date: 20050111
  Receipt Date: 20050104
  Transmission Date: 20050727
  Serious: Yes (Hospitalization)
  Sender: FDA-Public Use
  Company Number: 2005GB00012

PATIENT
  Age: 83 Year
  Sex: Female

DRUGS (5)
  1. ATENOLOL [Suspect]
     Indication: HYPERTENSION
     Dosage: 100 MG DAILY PO
     Route: 048
     Dates: end: 20040706
  2. PERINDOPRIL [Suspect]
     Indication: HYPERTENSION
     Dosage: 2 MG DAILY PO
     Route: 048
     Dates: start: 20040704, end: 20040706
  3. BENDROFLUAZIDE [Concomitant]
  4. NIFEDIPINE [Concomitant]
  5. ACYCLOVIR [Concomitant]

REACTIONS (2)
  - HYPOTENSION [None]
  - LOSS OF CONSCIOUSNESS [None]
